FAERS Safety Report 12431704 (Version 1)
Quarter: 2016Q2

REPORT INFORMATION
  Report Type: Spontaneous
  Country: FR (occurrence: FR)
  Receive Date: 20160603
  Receipt Date: 20160603
  Transmission Date: 20160815
  Serious: Yes (Hospitalization, Disabling)
  Sender: FDA-Public Use
  Company Number: FR-ACCORD-041234

PATIENT
  Age: 54 Year
  Sex: Male

DRUGS (2)
  1. CISPLATIN ACCORD [Suspect]
     Active Substance: CISPLATIN
     Indication: LUNG ADENOCARCINOMA
     Dosage: STRENGTH: 1 MG/ML, PERFUSION
     Route: 042
     Dates: start: 20160321
  2. ALIMTA [Suspect]
     Active Substance: PEMETREXED DISODIUM
     Indication: LUNG ADENOCARCINOMA
     Dosage: STRENGTH: 500 MG, PERFUSION
     Route: 042
     Dates: start: 20160321

REACTIONS (3)
  - Aphasia [Recovered/Resolved]
  - Locomotive syndrome [Recovered/Resolved]
  - Cerebrovascular accident [Recovered/Resolved with Sequelae]

NARRATIVE: CASE EVENT DATE: 20160330
